FAERS Safety Report 9795455 (Version 1)
Quarter: 2014Q1

REPORT INFORMATION
  Report Type: Spontaneous
  Country: IT (occurrence: IT)
  Receive Date: 20140103
  Receipt Date: 20140103
  Transmission Date: 20141002
  Serious: Yes (Other)
  Sender: FDA-Public Use
  Company Number: IT-MYLANLABS-113AS20130672

PATIENT
  Age: 66 Year
  Sex: Female

DRUGS (4)
  1. IRINOTECAN HYDROCHLORIDE TRIHYDRATE [Suspect]
     Indication: PANCREATIC CARCINOMA
     Dosage: 230 MG CYCLICAL
     Route: 042
     Dates: start: 20131009, end: 20131120
  2. FLUOROURACIL [Suspect]
     Indication: PANCREATIC CARCINOMA
     Dosage: 500 MG CYCLICAL
     Route: 040
     Dates: start: 20131009, end: 20131120
  3. FLUOROURACIL [Suspect]
     Indication: PANCREATIC CARCINOMA
     Dosage: 3100 MG CYCLICAL
     Route: 041
  4. FOLINIC ACID [Concomitant]
     Indication: PRODUCT USED FOR UNKNOWN INDICATION
     Dosage: 320 MG
     Route: 042
     Dates: start: 20131009, end: 20131120

REACTIONS (4)
  - Blood creatinine increased [Recovering/Resolving]
  - Leukopenia [Recovering/Resolving]
  - Neutropenia [Recovering/Resolving]
  - Transaminases increased [Recovering/Resolving]
